FAERS Safety Report 25330187 (Version 2)
Quarter: 2025Q2

REPORT INFORMATION
  Report Type: Report from Study
  Country: US (occurrence: US)
  Receive Date: 20250519
  Receipt Date: 20250526
  Transmission Date: 20250717
  Serious: No
  Sender: ACADIA PHARMACEUTICALS
  Company Number: US-ACADIA PHARMACEUTICALS INC.-ACA-2025-PIM-005811

PATIENT
  Age: 78 Year
  Sex: Male

DRUGS (13)
  1. NUPLAZID [Suspect]
     Active Substance: PIMAVANSERIN TARTRATE
     Indication: Parkinson^s disease psychosis
     Dosage: 34 MILLIGRAM, QD
     Route: 048
     Dates: start: 20250428
  2. SINEMET [Concomitant]
     Active Substance: CARBIDOPA\LEVODOPA
  3. SEROQUEL [Concomitant]
     Active Substance: QUETIAPINE FUMARATE
  4. FAMOTIDINE [Concomitant]
     Active Substance: FAMOTIDINE
  5. MECLIZINE [Concomitant]
     Active Substance: MECLIZINE HYDROCHLORIDE
  6. ALBUTEROL SULFATE [Concomitant]
     Active Substance: ALBUTEROL SULFATE
  7. MELATONIN [Concomitant]
     Active Substance: MELATONIN
  8. METOPROLOL [Concomitant]
     Active Substance: METOPROLOL
  9. MONTELUKAST [Concomitant]
     Active Substance: MONTELUKAST
  10. NABUMETONE [Concomitant]
     Active Substance: NABUMETONE
  11. ROSUVASTATIN [Concomitant]
     Active Substance: ROSUVASTATIN
  12. TRELEGY ELLIPTA [Concomitant]
     Active Substance: FLUTICASONE FUROATE\UMECLIDINIUM BROMIDE\VILANTEROL TRIFENATATE
  13. ACETAMINOPHEN [Concomitant]
     Active Substance: ACETAMINOPHEN

REACTIONS (1)
  - Rash [Not Recovered/Not Resolved]

NARRATIVE: CASE EVENT DATE: 20250505
